FAERS Safety Report 4400608-3 (Version None)
Quarter: 2004Q3

REPORT INFORMATION
  Report Type: 
  Country: None (occurrence: None)
  Receive Date: 20040716
  Receipt Date: 20040716
  Transmission Date: 20050211
  Serious: Yes (Hospitalization)
  Sender: FDA-Public Use
  Company Number: None

PATIENT
  Age: 47 Year
  Sex: Male

DRUGS (10)
  1. LIPITOR [Suspect]
     Indication: BLOOD CHOLESTEROL INCREASED
     Dosage: 40 MG PO
     Route: 048
     Dates: start: 20040324, end: 20040614
  2. FIORICET [Concomitant]
  3. ACCUPRIL [Concomitant]
  4. CLONIDINE HCL [Concomitant]
  5. LASIX [Concomitant]
  6. VERAPAMIL [Concomitant]
  7. PREVACID [Concomitant]
  8. VICODEN [Concomitant]
  9. TOPAMAX [Concomitant]
  10. TEGRITOL [Concomitant]

REACTIONS (3)
  - ENCEPHALOPATHY [None]
  - MYOSITIS [None]
  - RENAL FAILURE ACUTE [None]
